FAERS Safety Report 22242436 (Version 1)
Quarter: 2023Q2

REPORT INFORMATION
  Report Type: Spontaneous
  Country: CA (occurrence: CA)
  Receive Date: 20230422
  Receipt Date: 20230422
  Transmission Date: 20230722
  Serious: Yes (Other)
  Sender: FDA-Public Use
  Company Number: CA-SAMSUNG BIOEPIS-SB-2023-10067

PATIENT
  Age: 21 Year
  Sex: Male
  Weight: 68 kg

DRUGS (2)
  1. INFLIXIMAB [Suspect]
     Active Substance: INFLIXIMAB
     Indication: Crohn^s disease
     Route: 042
  2. INFLIXIMAB [Suspect]
     Active Substance: INFLIXIMAB
     Route: 042

REACTIONS (6)
  - Anaphylactic reaction [Unknown]
  - Aphthous ulcer [Unknown]
  - Colonic abscess [Unknown]
  - Headache [Unknown]
  - Intentional product use issue [Unknown]
  - Off label use [Unknown]
